FAERS Safety Report 16557340 (Version 2)
Quarter: 2019Q4

REPORT INFORMATION
  Report Type: Report from Study
  Country: DE (occurrence: DE)
  Receive Date: 20190711
  Receipt Date: 20191030
  Transmission Date: 20200122
  Serious: Yes (Hospitalization)
  Sender: FDA-Public Use
  Company Number: DE-PFIZER INC-2019290843

PATIENT
  Age: 50 Year
  Sex: Female
  Weight: 84 kg

DRUGS (15)
  1. DOXYCYCLINE HYCLATE. [Suspect]
     Active Substance: DOXYCYCLINE HYCLATE
     Indication: DERMATITIS
     Dosage: UNK
  2. TORASEMIDE [Concomitant]
     Active Substance: TORSEMIDE
     Dosage: UNK
  3. PREGABALIN. [Concomitant]
     Active Substance: PREGABALIN
     Dosage: 150 MG, 1X/DAY
     Route: 065
  4. DOXYCYCLINE HYCLATE. [Suspect]
     Active Substance: DOXYCYCLINE HYCLATE
     Indication: BIRTH MARK
     Dosage: 200 MG, 1X/DAY
     Route: 065
  5. TOCILIZUMAB. [Suspect]
     Active Substance: TOCILIZUMAB
     Dosage: 162 MG, WEEKLY
     Route: 058
     Dates: start: 20171110
  6. VIGANTOLETTEN [Concomitant]
     Active Substance: CHOLECALCIFEROL
     Dosage: UNK
  7. FOLIC ACID. [Concomitant]
     Active Substance: FOLIC ACID
     Dosage: UNK
  8. CORTISONE [Concomitant]
     Active Substance: CORTISONE
     Dosage: 6 MG, UNK
     Route: 065
  9. LEVODOPA [Concomitant]
     Active Substance: LEVODOPA
     Dosage: 1 DF, 1X/DAY (1 EVENING, 2 AT NIGHT)
     Route: 065
  10. METOPROLOL. [Concomitant]
     Active Substance: METOPROLOL
     Dosage: 47.5 MG, 1X/DAY
     Route: 065
  11. LEVODOPA [Concomitant]
     Active Substance: LEVODOPA
     Dosage: 1 DF, DAILY (25 MG IN THE EVENING, 50 MG AT NIGHT)
     Route: 065
  12. CORTISONE [Concomitant]
     Active Substance: CORTISONE
     Indication: RHEUMATOID ARTHRITIS
     Dosage: 2 MG, UNK
     Route: 065
  13. TOCILIZUMAB. [Suspect]
     Active Substance: TOCILIZUMAB
     Indication: RHEUMATOID ARTHRITIS
     Dosage: 162 MG, WEEKLY
     Route: 058
     Dates: start: 20150619, end: 20190614
  14. TOCILIZUMAB. [Suspect]
     Active Substance: TOCILIZUMAB
     Dosage: 162 MG, UNK (EVERY 14 DAYS)
     Route: 058
  15. OMEP [OMEPRAZOLE] [Concomitant]
     Dosage: 20 MG, 1X/DAY
     Route: 065

REACTIONS (19)
  - Musculoskeletal stiffness [Unknown]
  - Dermatitis [Recovered/Resolved]
  - Cough [Unknown]
  - Impaired healing [Recovered/Resolved]
  - Rib fracture [Unknown]
  - Tooth disorder [Unknown]
  - Vomiting [Recovered/Resolved]
  - Vitamin D deficiency [Unknown]
  - Rheumatoid lung [Unknown]
  - Contusion [Not Recovered/Not Resolved]
  - Bronchitis [Unknown]
  - Fluid retention [Recovered/Resolved]
  - Condition aggravated [Recovering/Resolving]
  - Pain [Unknown]
  - Weight decreased [Recovering/Resolving]
  - Wound haemorrhage [Unknown]
  - Polyneuropathy [Recovering/Resolving]
  - Rheumatoid arthritis [Recovered/Resolved]
  - Dyspnoea [Unknown]

NARRATIVE: CASE EVENT DATE: 20150619
